FAERS Safety Report 6883048-7 (Version None)
Quarter: 2010Q3

REPORT INFORMATION
  Report Type: 
  Country: None (occurrence: None)
  Receive Date: 20100729
  Receipt Date: 20100723
  Transmission Date: 20110219
  Serious: Yes (Hospitalization)
  Sender: FDA-Public Use
  Company Number: JP-CEPHALON-2010002983

PATIENT
  Sex: Female

DRUGS (3)
  1. MODAFINIL [Suspect]
     Indication: NARCOLEPSY
     Route: 048
     Dates: start: 20080826, end: 20100607
  2. MODAFINIL [Suspect]
     Route: 048
     Dates: start: 20100608
  3. THYRADIN [Concomitant]
     Indication: THYROID DISORDER
     Dates: start: 20080826

REACTIONS (10)
  - DEPRESSED MOOD [None]
  - HALLUCINATION, AUDITORY [None]
  - HYPERKINESIA [None]
  - INSOMNIA [None]
  - IRRITABILITY [None]
  - NEUROSIS [None]
  - PERSECUTORY DELUSION [None]
  - RESTLESSNESS [None]
  - SOMNOLENCE [None]
  - SUICIDE ATTEMPT [None]
